FAERS Safety Report 4340623-1 (Version None)
Quarter: 2004Q2

REPORT INFORMATION
  Report Type: 
  Country: None (occurrence: None)
  Receive Date: 20040414
  Receipt Date: 20040407
  Transmission Date: 20050107
  Serious: No
  Sender: FDA-Public Use
  Company Number: ENDC20040014

PATIENT
  Age: 53 Year
  Sex: Female

DRUGS (4)
  1. ENDOCET 7.5/325 7.5/325 MG ENDO [Suspect]
     Indication: PAIN
     Dosage: PO
     Route: 048
  2. MORPHINE SULFATE-ER 100 MG [Suspect]
     Indication: PAIN
     Dosage: PO
     Route: 048
  3. HYDROCODONE/APAP 5/500 MG [Concomitant]
     Indication: PAIN
     Dosage: PO
     Route: 048
  4. TRAZODONE HCL [Concomitant]

REACTIONS (2)
  - DEPRESSED LEVEL OF CONSCIOUSNESS [None]
  - OVERDOSE [None]
